FAERS Safety Report 21686102 (Version 7)
Quarter: 2023Q4

REPORT INFORMATION
  Report Type: Other
  Country: CA (occurrence: None)
  Receive Date: 20221206
  Receipt Date: 20231127
  Transmission Date: 20240109
  Serious: Yes (Other)
  Sender: FDA-Public Use
  Company Number: CA-ROCHE-3202759

PATIENT
  Sex: Male

DRUGS (4)
  1. OCREVUS [Suspect]
     Active Substance: OCRELIZUMAB
     Indication: Primary progressive multiple sclerosis
     Dosage: 300 MG AT DAY 0 AND 14, THEN 600 MG EVERY 6 MONTH
     Route: 042
     Dates: start: 20200623
  2. OCREVUS [Suspect]
     Active Substance: OCRELIZUMAB
     Route: 042
  3. ROSUVASTATIN [Concomitant]
     Active Substance: ROSUVASTATIN
  4. ALENDRONATE [Concomitant]
     Active Substance: ALENDRONATE SODIUM
     Dates: start: 20221015

REACTIONS (8)
  - Foot fracture [Not Recovered/Not Resolved]
  - Fall [Unknown]
  - Osteoporosis [Unknown]
  - COVID-19 [Unknown]
  - Rib fracture [Unknown]
  - Stress [Unknown]
  - Asthenia [Unknown]
  - Abdominal pain upper [Unknown]
